FAERS Safety Report 9207768 (Version 1)
Quarter: 2013Q2

REPORT INFORMATION
  Report Type: Spontaneous
  Country: US (occurrence: US)
  Receive Date: 20130403
  Receipt Date: 20130403
  Transmission Date: 20140414
  Serious: Yes (Hospitalization)
  Sender: FDA-Public Use
  Company Number: US-GLAXOSMITHKLINE-A0999189A

PATIENT
  Age: 46 Year
  Sex: Male

DRUGS (13)
  1. AVANDIA [Suspect]
     Indication: TYPE 2 DIABETES MELLITUS
     Dosage: 4MG TWICE PER DAY
     Route: 048
     Dates: start: 20041018, end: 20050531
  2. METFORMIN [Concomitant]
     Dosage: 1000MG TWICE PER DAY
  3. PLAVIX [Concomitant]
  4. INSULIN LANTUS [Concomitant]
     Dosage: 59U TWICE PER DAY
  5. AMARYL [Concomitant]
     Dosage: 4MG TWICE PER DAY
     Route: 065
  6. ASA [Concomitant]
  7. NITROGLYCERIN [Concomitant]
  8. ATACAND HCT [Concomitant]
  9. PROZAC [Concomitant]
  10. PREVACID [Concomitant]
  11. TOPROL XL [Concomitant]
  12. LIPITOR [Concomitant]
  13. BENADRYL [Concomitant]

REACTIONS (12)
  - Cardiac failure congestive [Recovered/Resolved]
  - Fluid retention [Recovered/Resolved]
  - Chest discomfort [Recovered/Resolved]
  - Dyspnoea [Recovered/Resolved]
  - Weight increased [Recovered/Resolved]
  - Weight loss poor [Recovered/Resolved]
  - Swelling [Recovered/Resolved]
  - Orthopnoea [Recovered/Resolved]
  - Dyspnoea paroxysmal nocturnal [Recovered/Resolved]
  - Abdominal distension [Recovered/Resolved]
  - Respiratory rate increased [Recovered/Resolved]
  - Fluid overload [Recovered/Resolved]
